FAERS Safety Report 6235152-4 (Version None)
Quarter: 2009Q2

REPORT INFORMATION
  Report Type: 
  Country: None (occurrence: None)
  Receive Date: 20090618
  Receipt Date: 20090609
  Transmission Date: 20091009
  Serious: Yes (Hospitalization)
  Sender: FDA-Public Use
  Company Number: FR-WYE-H09725409

PATIENT
  Sex: Male

DRUGS (5)
  1. CORDARONE [Suspect]
     Indication: ARRHYTHMIA
     Route: 048
     Dates: end: 20080613
  2. ALPRAZOLAM [Concomitant]
     Dosage: UNSPECIFIED
     Route: 048
  3. LASIX [Concomitant]
     Dosage: UNSPECIFIED
     Route: 048
  4. PREVISCAN [Concomitant]
     Dosage: UNSPECIFIED
     Route: 048
  5. TAHOR [Concomitant]
     Dosage: UNSPECIFIED
     Route: 048

REACTIONS (1)
  - AV DISSOCIATION [None]
